FAERS Safety Report 5652578-8 (Version None)
Quarter: 2008Q1

REPORT INFORMATION
  Report Type: 
  Country: None (occurrence: None)
  Receive Date: 20080306
  Receipt Date: 20080228
  Transmission Date: 20080703
  Serious: Yes (Other)
  Sender: FDA-Public Use
  Company Number: US-ASTRAZENECA-2008UW04137

PATIENT
  Age: 67 Year
  Sex: Female

DRUGS (3)
  1. ARIMIDEX [Suspect]
     Indication: BREAST CANCER FEMALE
     Route: 048
     Dates: start: 20060901
  2. FOOD SUPPLEMENTS [Concomitant]
  3. CALCIUM [Concomitant]

REACTIONS (3)
  - ARTHRALGIA [None]
  - HERPES ZOSTER [None]
  - RASH [None]
